FAERS Safety Report 18465875 (Version 1)
Quarter: 2020Q4

REPORT INFORMATION
  Report Type: Report from Study
  Country: US (occurrence: US)
  Receive Date: 20201105
  Receipt Date: 20201105
  Transmission Date: 20210114
  Serious: Yes (Death)
  Sender: FDA-Public Use
  Company Number: US-TAIHO ONCOLOGY  INC-EU-2020-03895

PATIENT
  Sex: Male
  Weight: 104.42 kg

DRUGS (2)
  1. ASPIRIN EC [Concomitant]
     Active Substance: ASPIRIN
  2. LONSURF [Suspect]
     Active Substance: TIPIRACIL HYDROCHLORIDE\TRIFLURIDINE
     Indication: PRODUCT USED FOR UNKNOWN INDICATION
     Dosage: CYCLE UNKNOWN
     Route: 048
     Dates: start: 20181008

REACTIONS (1)
  - Colon cancer [Fatal]
